FAERS Safety Report 12972496 (Version 1)
Quarter: 2016Q4

REPORT INFORMATION
  Report Type: Report from Study
  Country: KR (occurrence: KR)
  Receive Date: 20161124
  Receipt Date: 20161124
  Transmission Date: 20170207
  Serious: No
  Sender: FDA-Public Use
  Company Number: KR-PROSTRAKAN-2016-KR-0282

PATIENT

DRUGS (13)
  1. CEFIX [Concomitant]
     Indication: URINARY TRACT INFECTION
     Dosage: UNKNOWN
     Route: 065
     Dates: start: 20130718, end: 201307
  2. TACENOL-ER [Concomitant]
     Indication: CANCER PAIN
     Dosage: UNKNOWN
     Route: 065
     Dates: start: 20130604, end: 20130606
  3. GRANISETRON [Suspect]
     Active Substance: GRANISETRON
     Indication: PROPHYLAXIS OF NAUSEA AND VOMITING
     Dosage: UNKNOWN
     Route: 062
     Dates: start: 20130602, end: 20130606
  4. CHLORPHENIRAMINE MALEATE. [Concomitant]
     Active Substance: CHLORPHENIRAMINE MALEATE
     Indication: PROPHYLAXIS
     Dosage: UNKNOWN
     Route: 065
     Dates: start: 20130603, end: 20130603
  5. HARNAL [Concomitant]
     Active Substance: TAMSULOSIN HYDROCHLORIDE
     Indication: DYSURIA
     Dosage: UNKNOWN
     Route: 065
     Dates: start: 20130514
  6. MAG-O [Concomitant]
     Indication: CONSTIPATION
     Dosage: UNKNOWN
     Route: 065
     Dates: start: 20130604, end: 20130617
  7. MEGACE [Concomitant]
     Active Substance: MEGESTROL ACETATE
     Indication: PROPHYLAXIS
     Route: 065
     Dates: start: 20130604, end: 20130617
  8. DEXAMETHASONE. [Concomitant]
     Active Substance: DEXAMETHASONE
     Indication: PROPHYLAXIS
     Dosage: UNKNOWN
     Route: 065
     Dates: start: 20130602, end: 20130603
  9. CITOPCIN [Concomitant]
     Indication: URINARY TRACT INFECTION
     Dosage: UNKNOWN
     Route: 065
     Dates: start: 20130604, end: 20130607
  10. PHAZYME COMPLEX [Concomitant]
     Indication: PROPHYLAXIS
     Dosage: UNKNOWN
     Route: 065
     Dates: start: 20130603, end: 20130603
  11. NEOPLATIN [Concomitant]
     Active Substance: CISPLATIN
     Indication: PRODUCT USED FOR UNKNOWN INDICATION
     Dosage: UNKNOWN
     Route: 065
     Dates: start: 20130603, end: 20130603
  12. GASTER [Concomitant]
     Active Substance: FAMOTIDINE
     Indication: PROPHYLAXIS
     Dosage: UNKNOWN
     Route: 065
     Dates: start: 20130603, end: 20130603
  13. PADEXOL [Concomitant]
     Indication: PRODUCT USED FOR UNKNOWN INDICATION
     Dosage: UNKNOWN
     Route: 065
     Dates: start: 20130603, end: 20130603

REACTIONS (2)
  - Vomiting [Recovering/Resolving]
  - Nausea [Recovering/Resolving]

NARRATIVE: CASE EVENT DATE: 20130604
